FAERS Safety Report 7265135-7 (Version None)
Quarter: 2011Q1

REPORT INFORMATION
  Report Type: 
  Country: None (occurrence: None)
  Receive Date: 20110131
  Receipt Date: 20091009
  Transmission Date: 20110831
  Serious: Yes (Hospitalization)
  Sender: FDA-Public Use
  Company Number: DE-JNJFOC-20110106753

PATIENT
  Age: 53 Year
  Sex: Male

DRUGS (5)
  1. ACETYLSALICYLIC ACID SRT [Concomitant]
     Indication: ILL-DEFINED DISORDER
  2. CLOPIDOGREL [Concomitant]
     Indication: ILL-DEFINED DISORDER
  3. ABCIXIMAB [Suspect]
     Indication: ACUTE MYOCARDIAL INFARCTION
     Route: 042
  4. ABCIXIMAB [Suspect]
     Indication: MYOCARDIAL INFARCTION
     Route: 022
  5. HEPARIN [Concomitant]
     Indication: ILL-DEFINED DISORDER

REACTIONS (1)
  - CARDIAC TAMPONADE [None]
